FAERS Safety Report 7089400-1 (Version None)
Quarter: 2010Q4

REPORT INFORMATION
  Report Type: 
  Country: None (occurrence: None)
  Receive Date: 20101108
  Receipt Date: 20101029
  Transmission Date: 20110411
  Serious: Yes (Other)
  Sender: FDA-Public Use
  Company Number: US-PFIZER INC-2010123313

PATIENT
  Sex: Female
  Weight: 77.098 kg

DRUGS (5)
  1. LYRICA [Suspect]
     Indication: PAIN
     Dosage: 100 MG, 3X/DAY
     Route: 048
     Dates: start: 20100629, end: 20100709
  2. PRISTIQ [Concomitant]
     Dosage: 100 MG, DAILY
  3. LAMICTAL [Concomitant]
     Dosage: 200 MG, UNK
     Route: 048
  4. KLONOPIN [Concomitant]
     Indication: ANXIETY
     Dosage: 2 MG, UNK
  5. REBIF [Concomitant]
     Dosage: UNK

REACTIONS (5)
  - DIZZINESS [None]
  - DRUG INEFFECTIVE [None]
  - OPIATES POSITIVE [None]
  - PALPITATIONS [None]
  - SOMNOLENCE [None]
